FAERS Safety Report 10164456 (Version 1)
Quarter: 2014Q2

REPORT INFORMATION
  Report Type: Spontaneous
  Country: US (occurrence: US)
  Receive Date: 20140510
  Receipt Date: 20140510
  Transmission Date: 20141212
  Serious: No
  Sender: FDA-Public Use
  Company Number: US-BRISTOL-MYERS SQUIBB COMPANY-19524487

PATIENT
  Age: 43 Year
  Sex: Female
  Weight: 97.5 kg

DRUGS (10)
  1. BYDUREON [Suspect]
     Indication: TYPE 2 DIABETES MELLITUS
     Route: 058
     Dates: start: 20130903
  2. REBIF [Concomitant]
  3. LIPITOR [Concomitant]
  4. WELLBUTRIN [Concomitant]
  5. EFFEXOR [Concomitant]
  6. TOPAMAX [Concomitant]
  7. LISINOPRIL [Concomitant]
  8. METFORMIN [Concomitant]
  9. ONGLYZA TABS [Concomitant]
  10. ACETYLSALICYLIC ACID [Concomitant]

REACTIONS (3)
  - Injection site swelling [Not Recovered/Not Resolved]
  - Injection site nodule [Unknown]
  - Injection site pruritus [Unknown]
